FAERS Safety Report 8421571-4 (Version None)
Quarter: 2012Q2

REPORT INFORMATION
  Report Type: 
  Country: None (occurrence: None)
  Receive Date: 20120605
  Receipt Date: 20120605
  Transmission Date: 20120825
  Serious: No
  Sender: FDA-Public Use
  Company Number: None

PATIENT
  Age: 59 Year
  Sex: Female
  Weight: 65.318 kg

DRUGS (3)
  1. SKELAXIN [Suspect]
     Dosage: 1 TAB 800 MG 1 AT BEDTIME ORAL
     Route: 048
     Dates: start: 20120211, end: 20120215
  2. MEDROL [Suspect]
     Indication: ACCIDENT
     Dosage: DOSE PK ON 3RD DAY REACTION ORAL
     Route: 048
     Dates: start: 20120210, end: 20120212
  3. MEDROL [Suspect]
     Indication: HEAD INJURY
     Dosage: DOSE PK ON 3RD DAY REACTION ORAL
     Route: 048
     Dates: start: 20120210, end: 20120212

REACTIONS (5)
  - PRURITUS [None]
  - OEDEMA PERIPHERAL [None]
  - SWELLING FACE [None]
  - DYSPNOEA [None]
  - PHARYNGEAL OEDEMA [None]
